FAERS Safety Report 24210104 (Version 1)
Quarter: 2024Q3

REPORT INFORMATION
  Report Type: Other
  Country: DK (occurrence: DK)
  Receive Date: 20240814
  Receipt Date: 20240814
  Transmission Date: 20241016
  Serious: Yes (Hospitalization, Other)
  Sender: Chemistry & Health FZ
  Company Number: DK-Chemistry + Health FZ LLC-2160444

PATIENT
  Age: 76 Year
  Sex: Female

DRUGS (4)
  1. DOXEPIN HYDROCHLORIDE [Suspect]
     Active Substance: DOXEPIN HYDROCHLORIDE
     Indication: Depression
     Route: 065
  2. DOXEPIN HYDROCHLORIDE [Suspect]
     Active Substance: DOXEPIN HYDROCHLORIDE
     Indication: Anxiety
  3. FUROSEMIDE [Suspect]
     Active Substance: FUROSEMIDE
     Route: 065
  4. VENLAFAXINE [Suspect]
     Active Substance: VENLAFAXINE HYDROCHLORIDE
     Route: 065

REACTIONS (6)
  - Cognitive disorder [Recovering/Resolving]
  - Intentional product misuse [Unknown]
  - Tremor [Recovered/Resolved]
  - Dizziness [Unknown]
  - Nausea [Unknown]
  - Urinary retention [Unknown]
